FAERS Safety Report 5001315-9 (Version None)
Quarter: 2006Q2

REPORT INFORMATION
  Report Type: 
  Country: None (occurrence: None)
  Receive Date: 20060512
  Receipt Date: 20050414
  Transmission Date: 20061013
  Serious: Yes (Other)
  Sender: FDA-Public Use
  Company Number: US-MERCK-0504USA02553

PATIENT
  Age: 53 Year
  Sex: Male
  Weight: 75 kg

DRUGS (14)
  1. VIOXX [Suspect]
     Indication: ARTHRITIS
     Route: 048
     Dates: start: 20030101, end: 20040901
  2. PANCRELIPASE [Concomitant]
     Route: 065
  3. OMEPRAZOLE [Concomitant]
     Route: 065
  4. FENTANYL [Concomitant]
     Route: 065
  5. NIACIN [Concomitant]
     Route: 065
  6. ATENOLOL [Concomitant]
     Route: 065
  7. FUROSEMIDE [Concomitant]
     Route: 065
  8. DIAZEPAM [Concomitant]
     Route: 065
  9. AMITRIPTYLIN [Concomitant]
     Route: 065
  10. GABAPENTIN [Concomitant]
     Route: 065
  11. GEMFIBROZIL [Concomitant]
     Route: 065
  12. VITAMINS (UNSPECIFIED) [Concomitant]
     Route: 065
  13. OXYCODONE [Concomitant]
     Route: 065
  14. POTASSIUM (UNSPECIFIED) [Concomitant]
     Route: 065

REACTIONS (7)
  - BACK DISORDER [None]
  - CHEST PAIN [None]
  - HYPERTENSION [None]
  - OVERDOSE [None]
  - PANCREAS TRANSPLANT [None]
  - PANCREATIC DISORDER [None]
  - RENAL DISORDER [None]
